FAERS Safety Report 8031689-6 (Version None)
Quarter: 2012Q1

REPORT INFORMATION
  Report Type: 
  Country: None (occurrence: None)
  Receive Date: 20120109
  Receipt Date: 20120104
  Transmission Date: 20120608
  Serious: Yes (Hospitalization)
  Sender: FDA-Public Use
  Company Number: US-PFIZER INC-2012003107

PATIENT
  Sex: Male

DRUGS (7)
  1. DIAZEPAM [Suspect]
     Indication: ANXIETY
     Dosage: 5 MG, PRN
  2. VITAMIN TAB [Concomitant]
     Indication: SUPPLEMENTATION THERAPY
     Dosage: UNK
  3. ENOXAPARIN [Suspect]
     Dosage: 100 MG, SQ, BID
     Route: 058
     Dates: start: 20111220
  4. WARFARIN SODIUM [Suspect]
     Dosage: UNK
     Dates: start: 20111220
  5. SOTALOL HCL [Suspect]
     Indication: ATRIAL FIBRILLATION
     Dosage: 80 MG, UNK
  6. LIPITOR [Suspect]
     Indication: BLOOD CHOLESTEROL INCREASED
     Dosage: 40 MG, UNK
  7. FISH OIL [Concomitant]
     Indication: SUPPLEMENTATION THERAPY
     Dosage: UNK

REACTIONS (3)
  - INJECTION SITE HAEMATOMA [None]
  - SKIN DISCOLOURATION [None]
  - MALAISE [None]
